FAERS Safety Report 7338745-6 (Version None)
Quarter: 2011Q1

REPORT INFORMATION
  Report Type: 
  Country: None (occurrence: None)
  Receive Date: 20110308
  Receipt Date: 20110303
  Transmission Date: 20110831
  Serious: Yes (Hospitalization)
  Sender: FDA-Public Use
  Company Number: B0704563A

PATIENT
  Age: 56 Year
  Sex: Female

DRUGS (4)
  1. PRETANIX [Concomitant]
     Indication: HYPERTENSION
     Dosage: 4MG PER DAY
     Dates: start: 20081216
  2. XELODA [Suspect]
     Indication: BREAST CANCER
     Dosage: 2000MG PER DAY
     Route: 065
     Dates: start: 20101117, end: 20110203
  3. TYVERB [Suspect]
     Indication: BREAST CANCER
     Dosage: 6250MG PER DAY
     Route: 065
     Dates: start: 20101117, end: 20110203
  4. MEDROL [Concomitant]
     Dosage: 8MG PER DAY
     Dates: start: 20100801

REACTIONS (3)
  - CLOSTRIDIAL INFECTION [None]
  - VOMITING [None]
  - DIARRHOEA [None]
